FAERS Safety Report 10669483 (Version 1)
Quarter: 2014Q4

REPORT INFORMATION
  Report Type: Spontaneous
  Country: US (occurrence: US)
  Receive Date: 20141222
  Receipt Date: 20141222
  Transmission Date: 20150529
  Serious: No
  Sender: FDA-Public Use
  Company Number: US-SA-2014SA151377

PATIENT
  Sex: Female

DRUGS (4)
  1. ZANTAC [Concomitant]
     Active Substance: RANITIDINE HYDROCHLORIDE
  2. AUBAGIO [Suspect]
     Active Substance: TERIFLUNOMIDE
     Route: 065
  3. XANAX [Concomitant]
     Active Substance: ALPRAZOLAM
  4. VITAMIN D [Concomitant]
     Active Substance: CHOLECALCIFEROL
     Dosage: FREQUENCY: ONCE A WEEK DOSE:50000 NOT APPLICABLE

REACTIONS (3)
  - Thyroid disorder [Unknown]
  - Anaemia [Unknown]
  - Hepatic enzyme increased [Unknown]
